FAERS Safety Report 9067348 (Version 1)
Quarter: 2013Q1

REPORT INFORMATION
  Report Type: Spontaneous
  Country: CY (occurrence: CY)
  Receive Date: 20130214
  Receipt Date: 20130214
  Transmission Date: 20140127
  Serious: Yes (Death, Other)
  Sender: FDA-Public Use
  Company Number: PHHY2013CY014089

PATIENT
  Age: 50 Year
  Sex: Male

DRUGS (1)
  1. EXJADE [Suspect]
     Indication: THALASSAEMIA BETA
     Dosage: 20 MG/KG/DAY
     Dates: start: 20070723, end: 201203

REACTIONS (2)
  - Hepatocellular carcinoma [Fatal]
  - Pulmonary hypertension [Unknown]
